FAERS Safety Report 5674281-0 (Version None)
Quarter: 2008Q1

REPORT INFORMATION
  Report Type: 
  Country: None (occurrence: None)
  Receive Date: 20080320
  Receipt Date: 20080314
  Transmission Date: 20080703
  Serious: Yes (Death, Other)
  Sender: FDA-Public Use
  Company Number: AT-BAYER-200814613GPV

PATIENT
  Age: 56 Year

DRUGS (2)
  1. AVELOX [Suspect]
     Indication: SEPSIS
     Dosage: AS USED: 400 MG  UNIT DOSE: 400 MG
     Route: 042
     Dates: start: 20080101, end: 20080101
  2. CANCIDAS [Concomitant]
     Indication: CANDIDIASIS
     Route: 065

REACTIONS (4)
  - DEATH [None]
  - ORAL MUCOSAL EXFOLIATION [None]
  - SKIN EXFOLIATION [None]
  - TOXIC EPIDERMAL NECROLYSIS [None]
